FAERS Safety Report 8184514-7 (Version None)
Quarter: 2012Q1

REPORT INFORMATION
  Report Type: 
  Country: None (occurrence: None)
  Receive Date: 20120301
  Receipt Date: 20120214
  Transmission Date: 20120608
  Serious: Yes (Hospitalization, Other)
  Sender: FDA-Public Use
  Company Number: JPI-P-019584

PATIENT
  Age: 26 Year
  Sex: Female

DRUGS (5)
  1. XYREM [Suspect]
     Indication: CATAPLEXY
     Dosage: 4.5 GM (2.25 GM,2 IN 1 D),ORAL, 6 GM (3 GM,2 IN 1 D),ORAL
     Route: 048
     Dates: start: 20120127, end: 20120203
  2. XYREM [Suspect]
     Indication: CATAPLEXY
     Dosage: 4.5 GM (2.25 GM,2 IN 1 D),ORAL, 6 GM (3 GM,2 IN 1 D),ORAL
     Route: 048
     Dates: start: 20120204
  3. MULTIPLE UNSPECIFIED MEDICATIONS [Concomitant]
  4. CICLESONIDE [Concomitant]
  5. LEVALBUTEROL HYDROCHLORIDE [Concomitant]

REACTIONS (8)
  - PSYCHOMOTOR HYPERACTIVITY [None]
  - DEPRESSION [None]
  - SUICIDAL IDEATION [None]
  - CONDITION AGGRAVATED [None]
  - URINE OUTPUT INCREASED [None]
  - HEART RATE INCREASED [None]
  - POLLAKIURIA [None]
  - SLEEP DISORDER [None]
